FAERS Safety Report 19309894 (Version 2)
Quarter: 2021Q2

REPORT INFORMATION
  Report Type: Spontaneous
  Country: US (occurrence: US)
  Receive Date: 20210526
  Receipt Date: 20210615
  Transmission Date: 20210717
  Serious: No
  Sender: FDA-Public Use
  Company Number: US-ELI_LILLY_AND_COMPANY-US202105011893

PATIENT

DRUGS (1)
  1. TRULICITY [Suspect]
     Active Substance: DULAGLUTIDE
     Indication: PRODUCT USED FOR UNKNOWN INDICATION
     Dosage: UNK UNK, UNKNOWN
     Route: 065

REACTIONS (7)
  - Abdominal discomfort [Unknown]
  - Weight increased [Unknown]
  - Fluid retention [Unknown]
  - Palpitations [Unknown]
  - Peripheral swelling [Unknown]
  - Nausea [Unknown]
  - Hypersensitivity [Unknown]
